FAERS Safety Report 22281046 (Version 3)
Quarter: 2025Q2

REPORT INFORMATION
  Report Type: Spontaneous
  Country: US (occurrence: US)
  Receive Date: 20230504
  Receipt Date: 20250531
  Transmission Date: 20250716
  Serious: No
  Sender: CIPLA
  Company Number: US-CIPLA LTD.-2023US00573

PATIENT

DRUGS (3)
  1. ALBUTEROL [Suspect]
     Active Substance: ALBUTEROL
     Indication: Chronic obstructive pulmonary disease
     Dates: start: 20230126
  2. VERAPAMIL [Concomitant]
     Active Substance: VERAPAMIL HYDROCHLORIDE
     Indication: Hypertension
     Dosage: 180 MILLIGRAM, BID (ER CAPSULES)
     Route: 065
  3. XANAX [Concomitant]
     Active Substance: ALPRAZOLAM
     Indication: Panic disorder
     Dosage: 0.25 MILLIGRAM, TID
     Route: 065
     Dates: start: 2002

REACTIONS (2)
  - Dizziness [Recovering/Resolving]
  - Nervousness [Recovering/Resolving]

NARRATIVE: CASE EVENT DATE: 20230126
